FAERS Safety Report 24282021 (Version 2)
Quarter: 2025Q1

REPORT INFORMATION
  Report Type: Report from Study
  Country: SE (occurrence: SE)
  Receive Date: 20240904
  Receipt Date: 20250311
  Transmission Date: 20250408
  Serious: Yes (Disabling)
  Sender: PFIZER
  Company Number: SE-PFIZER INC-PV202400114690

PATIENT
  Age: 3 Year
  Sex: Female
  Weight: 17.8 kg

DRUGS (4)
  1. LORLATINIB [Suspect]
     Active Substance: LORLATINIB
     Indication: Neuroblastoma
     Dosage: 65 MG, DAILY
     Route: 048
     Dates: start: 20230202
  2. LORLATINIB [Suspect]
     Active Substance: LORLATINIB
     Dosage: 65 MG, DAILY
     Route: 048
     Dates: start: 20230202
  3. LORLATINIB [Suspect]
     Active Substance: LORLATINIB
     Dates: start: 20230202
  4. LORLATINIB [Suspect]
     Active Substance: LORLATINIB

REACTIONS (4)
  - Irritability [Not Recovered/Not Resolved]
  - Weight increased [Not Recovered/Not Resolved]
  - Agitation [Unknown]
  - Increased appetite [Unknown]

NARRATIVE: CASE EVENT DATE: 20240701
